FAERS Safety Report 17940057 (Version 1)
Quarter: 2020Q2

REPORT INFORMATION
  Report Type: Spontaneous
  Country: PA (occurrence: PA)
  Receive Date: 20200625
  Receipt Date: 20200625
  Transmission Date: 20200714
  Serious: Yes (Hospitalization, Other)
  Sender: FDA-Public Use
  Company Number: PA-SA-2020SA157479

PATIENT

DRUGS (1)
  1. APROVEL [Suspect]
     Active Substance: IRBESARTAN
     Dosage: 300 MG STRENGTH
     Route: 065

REACTIONS (1)
  - COVID-19 [Unknown]
